FAERS Safety Report 5526391-6 (Version None)
Quarter: 2007Q4

REPORT INFORMATION
  Report Type: 
  Country: None (occurrence: None)
  Receive Date: 20071123
  Receipt Date: 20070724
  Transmission Date: 20080405
  Serious: Yes (Death, Hospitalization)
  Sender: FDA-Public Use
  Company Number: US-JNJFOC-20070705629

PATIENT
  Sex: Female

DRUGS (1)
  1. LEVAQUIN [Suspect]
     Indication: UROSEPSIS
     Dosage: 500 MG, INTRAVENOUS
     Route: 042

REACTIONS (1)
  - CLOSTRIDIAL INFECTION [None]
